FAERS Safety Report 9981443 (Version 2)
Quarter: 2014Q1

REPORT INFORMATION
  Report Type: Spontaneous
  Country: FR (occurrence: FR)
  Receive Date: 20140307
  Receipt Date: 20140307
  Transmission Date: 20141002
  Serious: Yes (Disabling)
  Sender: FDA-Public Use
  Company Number: FR-BRISTOL-MYERS SQUIBB COMPANY-19940337

PATIENT
  Age: 74 Year
  Sex: Male
  Weight: 86 kg

DRUGS (5)
  1. HYDREA [Suspect]
     Indication: POLYCYTHAEMIA VERA
     Route: 048
     Dates: start: 2008
  2. PREVISCAN [Concomitant]
  3. PROPANOLOL HYDROCHLORIDE [Concomitant]
  4. EFFERALGAN [Concomitant]
  5. ALDACTAZINE [Concomitant]

REACTIONS (1)
  - Hordeolum [Not Recovered/Not Resolved]
